FAERS Safety Report 7525380-X (Version None)
Quarter: 2011Q2

REPORT INFORMATION
  Report Type: 
  Country: None (occurrence: None)
  Receive Date: 20110606
  Receipt Date: 20110602
  Transmission Date: 20111010
  Serious: Yes (Other)
  Sender: FDA-Public Use
  Company Number: US-ROCHE-661674

PATIENT
  Sex: Male

DRUGS (4)
  1. PEGASYS [Suspect]
     Indication: HEPATITIS C
     Dosage: FORM: PRE-FILLED SYRINGE
     Route: 065
     Dates: start: 20090928, end: 20100823
  2. RIBAVIRIN [Suspect]
     Indication: HEPATITIS C
     Route: 065
     Dates: start: 20090928, end: 20100823
  3. XANAX [Concomitant]
     Indication: ANXIETY
  4. RESTORIL [Concomitant]
     Indication: SLEEP DISORDER THERAPY

REACTIONS (20)
  - FATIGUE [None]
  - RASH PAPULAR [None]
  - MEMORY IMPAIRMENT [None]
  - DRY MOUTH [None]
  - IRRITABILITY [None]
  - INSOMNIA [None]
  - PLATELET COUNT DECREASED [None]
  - DECREASED APPETITE [None]
  - ANXIETY [None]
  - INJECTION SITE RASH [None]
  - PHOTOPHOBIA [None]
  - INTESTINAL MASS [None]
  - NEUTROPHIL COUNT DECREASED [None]
  - INJECTION SITE HAEMATOMA [None]
  - ALOPECIA [None]
  - DIARRHOEA [None]
  - ASTHENOPIA [None]
  - COUGH [None]
  - HEADACHE [None]
  - INFLUENZA LIKE ILLNESS [None]
